FAERS Safety Report 9134278 (Version 3)
Quarter: 2013Q2

REPORT INFORMATION
  Report Type: Spontaneous
  Country: HR (occurrence: HR)
  Receive Date: 20130304
  Receipt Date: 20130611
  Transmission Date: 20140414
  Serious: Yes (Hospitalization, Other)
  Sender: FDA-Public Use
  Company Number: HR-JNJFOC-20130211073

PATIENT
  Age: 30 Year
  Sex: Male

DRUGS (4)
  1. RISPOLEPT CONSTA [Suspect]
     Indication: PSYCHOTIC DISORDER
     Route: 030
     Dates: start: 200808, end: 201012
  2. RISPOLEPT CONSTA [Suspect]
     Indication: PSYCHOTIC DISORDER
     Route: 030
     Dates: start: 201012, end: 201203
  3. RISPOLEPT CONSTA [Suspect]
     Indication: PSYCHOTIC DISORDER
     Route: 030
     Dates: start: 201203
  4. RISPOLEPT CONSTA [Suspect]
     Indication: PSYCHOTIC DISORDER
     Route: 030
     Dates: start: 200707, end: 200808

REACTIONS (2)
  - Psychotic disorder [Recovered/Resolved]
  - Restlessness [Not Recovered/Not Resolved]
